FAERS Safety Report 9049484 (Version 2)
Quarter: 2013Q1

REPORT INFORMATION
  Report Type: Spontaneous
  Country: ES (occurrence: ES)
  Receive Date: 20130205
  Receipt Date: 20130219
  Transmission Date: 20140127
  Serious: Yes (Other)
  Sender: FDA-Public Use
  Company Number: ES-JNJFOC-20130114955

PATIENT
  Age: 41 None
  Sex: Male
  Weight: 170 kg

DRUGS (1)
  1. XEPLION [Suspect]
     Indication: PRODUCT USED FOR UNKNOWN INDICATION
     Route: 030
     Dates: start: 20130121, end: 20130121

REACTIONS (1)
  - Anaphylactic shock [Recovered/Resolved]
